FAERS Safety Report 18182697 (Version 2)
Quarter: 2022Q2

REPORT INFORMATION
  Report Type: Report from Study
  Country: US (occurrence: US)
  Receive Date: 20200821
  Receipt Date: 20220414
  Transmission Date: 20220721
  Serious: No
  Sender: FDA-Public Use
  Company Number: US-ABBVIE-20P-163-3528637-00

PATIENT
  Age: 40 Year
  Sex: Female
  Weight: 97.2 kg

DRUGS (14)
  1. ELAGOLIX SODIUM\ESTRADIOL\NORETHINDRONE [Suspect]
     Active Substance: ELAGOLIX SODIUM\ESTRADIOL\NORETHINDRONE
     Indication: Uterine leiomyoma
     Dosage: ELAGOLIX 300MG, ESTRADIOL/NORETHINDRONE 1.0MG/0.5MG
     Route: 048
     Dates: start: 20180725, end: 20190625
  2. ELAGOLIX [Suspect]
     Active Substance: ELAGOLIX
     Indication: Uterine leiomyoma
     Dosage: PM DOSE
     Route: 048
     Dates: start: 20180725, end: 20190625
  3. ELAGOLIX SODIUM\ESTRADIOL\NORETHINDRONE [Suspect]
     Active Substance: ELAGOLIX SODIUM\ESTRADIOL\NORETHINDRONE
     Indication: Uterine leiomyoma
     Dosage: ELAGOLIX 300 MG, ESTRADIOL/NORETHINDRONE 1.0MG/0.5MG
     Route: 048
     Dates: start: 20190626
  4. ELAGOLIX [Suspect]
     Active Substance: ELAGOLIX
     Indication: Uterine leiomyoma
     Dosage: PM DOSE
     Route: 048
     Dates: start: 20190626
  5. HCZ [Concomitant]
     Indication: Hypertension
     Route: 048
     Dates: start: 1998
  6. RANITIDINE [Concomitant]
     Active Substance: RANITIDINE
     Indication: Gastrooesophageal reflux disease
     Route: 048
     Dates: start: 2013
  7. IBUPROFEN [Concomitant]
     Active Substance: IBUPROFEN
     Indication: Back pain
     Route: 048
     Dates: start: 2017
  8. DOCUSATE SODIUM [Concomitant]
     Active Substance: DOCUSATE SODIUM
     Indication: Faeces hard
     Route: 048
     Dates: start: 20180620
  9. DOCUSATE SODIUM [Concomitant]
     Active Substance: DOCUSATE SODIUM
     Indication: Mineral supplementation
  10. VITAMIN D [Concomitant]
     Active Substance: VITAMIN D NOS
     Indication: Vitamin D decreased
     Route: 048
     Dates: start: 20180720
  11. FERROUS SULFATE [Concomitant]
     Active Substance: FERROUS SULFATE
     Indication: Blood iron decreased
     Route: 048
     Dates: start: 20190115
  12. MOTRIN [Concomitant]
     Active Substance: IBUPROFEN
     Indication: Biopsy endometrium
     Dates: start: 20190626
  13. AMLODIPINE BESYLATE [Concomitant]
     Active Substance: AMLODIPINE BESYLATE
     Indication: Hypertension
     Route: 048
     Dates: start: 20190816
  14. BIOTIN [Concomitant]
     Active Substance: BIOTIN
     Indication: Alopecia
     Dosage: 1000 UG
     Route: 048
     Dates: start: 20190816

REACTIONS (1)
  - Alopecia [Recovered/Resolved]

NARRATIVE: CASE EVENT DATE: 20200601
